FAERS Safety Report 12976967 (Version 2)
Quarter: 2016Q4

REPORT INFORMATION
  Report Type: Report from Study
  Country: DE (occurrence: DE)
  Receive Date: 20161128
  Receipt Date: 20161205
  Transmission Date: 20170207
  Serious: Yes (Death)
  Sender: FDA-Public Use
  Company Number: PHHY2016DE162613

PATIENT
  Sex: Female
  Weight: 86 kg

DRUGS (3)
  1. EXEMESTANE. [Concomitant]
     Active Substance: EXEMESTANE
     Indication: BREAST CANCER METASTATIC
     Dosage: 25 MG, QD (ONCE DAILY)
     Route: 048
     Dates: start: 20150626, end: 20150809
  2. AFINITOR [Suspect]
     Active Substance: EVEROLIMUS
     Indication: BREAST CANCER METASTATIC
     Dosage: 5 MG, QD (ONCE DAILY)
     Route: 048
     Dates: start: 20150626, end: 20150716
  3. AFINITOR [Suspect]
     Active Substance: EVEROLIMUS
     Dosage: 7.5 MG, QD (ONCE DAILY)
     Route: 048
     Dates: start: 20150717, end: 20150808

REACTIONS (1)
  - Death [Fatal]

NARRATIVE: CASE EVENT DATE: 20150812
